FAERS Safety Report 5873243-8 (Version None)
Quarter: 2008Q3

REPORT INFORMATION
  Report Type: 
  Country: None (occurrence: None)
  Receive Date: 20080908
  Receipt Date: 20080825
  Transmission Date: 20090109
  Serious: Yes (Other)
  Sender: FDA-Public Use
  Company Number: ES-SP-E2008-08120

PATIENT
  Age: 39 Year
  Sex: Female

DRUGS (1)
  1. TUBERSOL [Suspect]
     Indication: TUBERCULOSIS TEST
     Route: 065

REACTIONS (11)
  - ACANTHOSIS [None]
  - HYPERKERATOSIS [None]
  - LYMPHOCYTE COUNT [None]
  - NEUTROPHIL COUNT DECREASED [None]
  - PARAKERATOSIS [None]
  - PUSTULAR PSORIASIS [None]
  - RASH ERYTHEMATOUS [None]
  - RASH MACULO-PAPULAR [None]
  - SKIN DISORDER [None]
  - SKIN OEDEMA [None]
  - SUBCUTANEOUS ABSCESS [None]
